FAERS Safety Report 4705179-X (Version None)
Quarter: 2005Q3

REPORT INFORMATION
  Report Type: 
  Country: None (occurrence: None)
  Receive Date: 20050701
  Receipt Date: 20050620
  Transmission Date: 20060218
  Serious: Yes (Hospitalization)
  Sender: FDA-Public Use
  Company Number: PHRM2005FR01896

PATIENT
  Age: 49 Year
  Sex: Male
  Weight: 64 kg

DRUGS (5)
  1. SIMULECT [Suspect]
     Indication: RENAL TRANSPLANT
     Dosage: 20 MG, ONCE/SINGLE
     Route: 042
     Dates: start: 20050503, end: 20050503
  2. POLARAMINE [Concomitant]
     Dosage: UNK, UNK
     Route: 042
     Dates: start: 20050503, end: 20050503
  3. SOLU-MEDROL [Concomitant]
     Dosage: UNK, UNK
     Route: 042
     Dates: start: 20050503, end: 20050503
  4. ATARAX [Concomitant]
     Dates: start: 20050503
  5. CELLCEPT [Concomitant]
     Dates: start: 20050503

REACTIONS (4)
  - ERYTHEMA [None]
  - HYPERTENSIVE CRISIS [None]
  - LARYNGEAL DYSPNOEA [None]
  - SWEAT GLAND DISORDER [None]
